FAERS Safety Report 8478179-4 (Version None)
Quarter: 2012Q2

REPORT INFORMATION
  Report Type: 
  Country: None (occurrence: None)
  Receive Date: 20120629
  Receipt Date: 20120625
  Transmission Date: 20120825
  Serious: Yes (Hospitalization)
  Sender: FDA-Public Use
  Company Number: PHHY2012JP055266

PATIENT
  Age: 7 Year
  Sex: Female

DRUGS (2)
  1. CARBAMAZEPINE [Suspect]
     Indication: CLONIC CONVULSION
     Route: 048
  2. MIDAZOLAM [Concomitant]
     Indication: CLONIC CONVULSION

REACTIONS (2)
  - HYPERTHYROIDISM [None]
  - SUPERIOR SAGITTAL SINUS THROMBOSIS [None]
